FAERS Safety Report 9753880 (Version 1)
Quarter: 2013Q4

REPORT INFORMATION
  Report Type: Spontaneous
  Country: US (occurrence: US)
  Receive Date: 20131213
  Receipt Date: 20131213
  Transmission Date: 20140711
  Serious: No
  Sender: FDA-Public Use
  Company Number: US-GILEAD-2010-0027726

PATIENT
  Age: 75 Year
  Sex: Male
  Weight: 79.38 kg

DRUGS (13)
  1. LETAIRIS [Suspect]
     Indication: PULMONARY ARTERIAL HYPERTENSION
     Route: 048
     Dates: start: 20081128
  2. LEVAQUIN [Concomitant]
  3. PREDNISONE [Concomitant]
  4. PAROXETINE [Concomitant]
  5. PLAVIX [Concomitant]
  6. PERFOROMIST [Concomitant]
  7. FLOMAX [Concomitant]
  8. ZESTRIL [Concomitant]
  9. NEXIUM [Concomitant]
  10. CITALOPRAM [Concomitant]
  11. REVATIO [Concomitant]
  12. AMBIEN CR [Concomitant]
  13. PRAVACHOL [Concomitant]

REACTIONS (1)
  - Pneumonia [Recovering/Resolving]
